FAERS Safety Report 11836726 (Version 2)
Quarter: 2015Q4

REPORT INFORMATION
  Report Type: Spontaneous
  Country: IT (occurrence: IT)
  Receive Date: 20151215
  Receipt Date: 20151218
  Transmission Date: 20160305
  Serious: Yes (Life-Threatening)
  Sender: FDA-Public Use
  Company Number: PHHY2015IT162558

PATIENT
  Age: 23 Year
  Sex: Female
  Weight: 55 kg

DRUGS (1)
  1. PARACETAMOL [Suspect]
     Active Substance: ACETAMINOPHEN
     Indication: DRUG ABUSE
     Dosage: 10 G, ONCE/SINGLE
     Route: 048
     Dates: start: 20151208, end: 20151208

REACTIONS (3)
  - Drug abuse [Recovering/Resolving]
  - Self-injurious ideation [Recovering/Resolving]
  - Sopor [Recovering/Resolving]

NARRATIVE: CASE EVENT DATE: 20151208
